FAERS Safety Report 6293138-8 (Version None)
Quarter: 2009Q3

REPORT INFORMATION
  Report Type: 
  Country: None (occurrence: None)
  Receive Date: 20090731
  Receipt Date: 20090721
  Transmission Date: 20100115
  Serious: Yes (Death, Hospitalization)
  Sender: FDA-Public Use
  Company Number: DE-ABBOTT-09P-062-0582415-00

PATIENT
  Sex: Male

DRUGS (10)
  1. HUMIRA [Suspect]
     Indication: RHEUMATOID ARTHRITIS
     Route: 058
     Dates: start: 20030901, end: 20090609
  2. AMLODIPINE [Concomitant]
     Indication: HYPERTENSION
     Route: 048
  3. PANTOPRAZOL [Concomitant]
     Indication: GASTRITIS
  4. PANTOPRAZOL [Concomitant]
     Indication: PROPHYLAXIS
  5. DICLOFENAC [Concomitant]
     Indication: PAIN
  6. PREDNISOLONE [Concomitant]
     Indication: RHEUMATOID ARTHRITIS
  7. TAMSULOSIN [Concomitant]
     Indication: BENIGN PROSTATIC HYPERPLASIA
     Route: 048
  8. LIPIDIL [Concomitant]
     Indication: BLOOD TRIGLYCERIDES ABNORMAL
     Route: 048
  9. TILIDINE/NALOXONE [Concomitant]
     Indication: PAIN
     Route: 048
  10. FORMOTEROL FUMARATE [Concomitant]
     Indication: PULMONARY FIBROSIS

REACTIONS (3)
  - DEATH [None]
  - DYSPNOEA [None]
  - GENERAL PHYSICAL HEALTH DETERIORATION [None]
